FAERS Safety Report 14406658 (Version 1)
Quarter: 2018Q1

REPORT INFORMATION
  Report Type: Report from Study
  Country: US (occurrence: US)
  Receive Date: 20180118
  Receipt Date: 20180118
  Transmission Date: 20180509
  Serious: Yes (Hospitalization, Other)
  Sender: FDA-Public Use
  Company Number: US-TEVA-2018-US-843602

PATIENT
  Sex: Female

DRUGS (2)
  1. AUSTEDO [Suspect]
     Active Substance: DEUTETRABENAZINE
     Dosage: 12 MILLIGRAM DAILY; 6 MG TAB TWICE DAILY
     Route: 065
     Dates: end: 20171225
  2. AUSTEDO [Suspect]
     Active Substance: DEUTETRABENAZINE
     Indication: TARDIVE DYSKINESIA
     Dosage: TITRATION
     Route: 065
     Dates: start: 20171222

REACTIONS (3)
  - Suicidal ideation [Unknown]
  - Alcohol poisoning [Unknown]
  - Depression [Unknown]
